FAERS Safety Report 12860001 (Version 1)
Quarter: 2016Q4

REPORT INFORMATION
  Report Type: Spontaneous
  Country: US (occurrence: US)
  Receive Date: 20161019
  Receipt Date: 20161019
  Transmission Date: 20170207
  Serious: No
  Sender: FDA-Public Use
  Company Number: None

PATIENT

DRUGS (1)
  1. EQUATE KIDS SUNSCREEN LOTION 50 [Suspect]
     Active Substance: HOMOSALATE\OCTINOXATE\OCTISALATE\TITANIUM DIOXIDE

REACTIONS (5)
  - Skin mass [None]
  - Failure of child resistant mechanism for pharmaceutical product [None]
  - Rash generalised [None]
  - Scar [None]
  - Multiple injuries [None]

NARRATIVE: CASE EVENT DATE: 20160608
